FAERS Safety Report 5168106-X (Version None)
Quarter: 2006Q4

REPORT INFORMATION
  Report Type: 
  Country: None (occurrence: None)
  Receive Date: 20061208
  Receipt Date: 20061127
  Transmission Date: 20070319
  Serious: Yes (Hospitalization)
  Sender: FDA-Public Use
  Company Number: DEWYE653027NOV06

PATIENT
  Age: 47 Year
  Sex: Male

DRUGS (3)
  1. ENBREL [Suspect]
     Indication: RHEUMATOID ARTHRITIS
     Dosage: CUMULATIVE DOSE 50 MG
     Route: 058
     Dates: start: 20060601, end: 20060601
  2. HUMIRA [Suspect]
     Indication: RHEUMATOID ARTHRITIS
     Dosage: CUMULATIVE DOSE 240 MG
     Route: 058
     Dates: start: 20060301, end: 20060501
  3. GLUCOCORTICOIDS [Concomitant]
     Dates: start: 20050301, end: 20060601

REACTIONS (3)
  - ASTHENIA [None]
  - MALAISE [None]
  - WEIGHT DECREASED [None]
